FAERS Safety Report 8359239-5 (Version None)
Quarter: 2012Q2

REPORT INFORMATION
  Report Type: 
  Country: None (occurrence: None)
  Receive Date: 20120515
  Receipt Date: 20120508
  Transmission Date: 20120825
  Serious: Yes (Death)
  Sender: FDA-Public Use
  Company Number: US-CELGENEUS-163-21880-12032198

PATIENT
  Sex: Male

DRUGS (21)
  1. CITRACAL + D [Concomitant]
     Route: 048
  2. DOXYCYCLINE [Concomitant]
     Dosage: 150 MILLIGRAM
     Route: 048
  3. KCL-40 [Concomitant]
     Dosage: 40
     Route: 048
  4. ACYCLOVIR [Concomitant]
     Dosage: 200/5 ML
     Route: 048
  5. IPRATORPIUM / SOL ALBUTER [Concomitant]
     Route: 065
  6. MEGACE [Concomitant]
     Dosage: 40MG/ML
     Route: 048
  7. VITAMIN B PLUS [Concomitant]
     Route: 048
  8. VORICONAZOLE [Concomitant]
     Dosage: 50 MILLIGRAM
     Route: 048
  9. WELCHOL [Concomitant]
     Dosage: 625 MILLIGRAM
     Route: 048
  10. DIPHENHYDRAMINE HCL [Concomitant]
     Dosage: 50 MILLIGRAM
     Route: 048
  11. SYMBICORT [Concomitant]
     Dosage: 80-4.5
     Route: 065
  12. DILTIAZEM [Concomitant]
     Dosage: 180 MILLIGRAM
     Route: 048
  13. PROAIR HFA [Concomitant]
     Route: 065
  14. REVLIMID [Suspect]
     Indication: MULTIPLE MYELOMA
     Dosage: 50 MILLIGRAM
     Route: 048
  15. CREON [Concomitant]
     Dosage: 5
     Route: 048
  16. PREDNISONE [Concomitant]
     Dosage: 1 MILLIGRAM
     Route: 048
  17. SINGULAIR [Concomitant]
     Dosage: 4 MILLIGRAM
     Route: 065
  18. SPIRIVA [Concomitant]
     Route: 048
  19. PRILOSEC [Concomitant]
     Dosage: 20 MILLIGRAM
     Route: 048
  20. ZYRTEC [Concomitant]
     Dosage: 5 MILLIGRAM
     Route: 048
  21. HYDROCODONE SYP PE/CPM [Concomitant]
     Route: 065

REACTIONS (1)
  - DEATH [None]
